FAERS Safety Report 20353487 (Version 1)
Quarter: 2022Q1

REPORT INFORMATION
  Report Type: Spontaneous
  Country: US (occurrence: US)
  Receive Date: 20220119
  Receipt Date: 20220119
  Transmission Date: 20220423
  Serious: Yes (Hospitalization)
  Sender: FDA-Public Use
  Company Number: US-BIOVITRUM-2022US00552

PATIENT
  Age: 1 Year
  Sex: Male
  Weight: 10 kg

DRUGS (9)
  1. SYNAGIS [Suspect]
     Active Substance: PALIVIZUMAB
     Indication: Premature baby
     Route: 030
     Dates: start: 202012
  2. GABAPENTIN [Concomitant]
     Active Substance: GABAPENTIN
     Dosage: 250 MG/5ML SOLUTION
  3. HYDROCORTISONE [Concomitant]
     Active Substance: HYDROCORTISONE
  4. FUROSEMIDE [Concomitant]
     Active Substance: FUROSEMIDE
     Dosage: 10 MG/ML SOLUTION
  5. VITAMINS [Concomitant]
     Active Substance: VITAMINS
     Dosage: 9 MG/15 ML LIQUID
  6. IRONUP [Concomitant]
     Dosage: 15MG/0.5ML DROPS
  7. SYNAGIS [Suspect]
     Active Substance: PALIVIZUMAB
     Indication: Forceps delivery
  8. SYNAGIS [Suspect]
     Active Substance: PALIVIZUMAB
     Indication: Bronchopulmonary dysplasia
  9. ALBUTEROL SULFATE [Concomitant]
     Active Substance: ALBUTEROL SULFATE

REACTIONS (4)
  - Oxygen saturation decreased [Unknown]
  - Illness [Unknown]
  - Nasopharyngitis [Unknown]
  - Inappropriate schedule of product administration [Unknown]

NARRATIVE: CASE EVENT DATE: 20211001
